FAERS Safety Report 5751560-X (Version None)
Quarter: 2008Q2

REPORT INFORMATION
  Report Type: 
  Country: None (occurrence: None)
  Receive Date: 20080528
  Receipt Date: 20080519
  Transmission Date: 20081010
  Serious: Yes (Other)
  Sender: FDA-Public Use
  Company Number: PHBS2008BR02797

PATIENT
  Age: 33 Year
  Sex: Male
  Weight: 60 kg

DRUGS (4)
  1. TOFRANIL [Suspect]
     Indication: AFFECTIVE DISORDER
     Dosage: UNK DF, UNK
     Dates: start: 19980101
  2. TOFRANIL [Suspect]
     Indication: AFFECTIVE DISORDER
     Dosage: 25 MG/DAY
     Route: 048
     Dates: start: 20080206, end: 20080301
  3. RIVOTRIL [Concomitant]
     Indication: SOMNOLENCE
     Dosage: 0.5 MG ONCE AT NIGHT
     Route: 048
     Dates: start: 20080206
  4. AMITRIPTYLINE HCL [Concomitant]
     Dosage: UNK

REACTIONS (4)
  - ASTHENOPIA [None]
  - SCOTOMA [None]
  - TREMOR [None]
  - VISION BLURRED [None]
